FAERS Safety Report 9816264 (Version 1)
Quarter: 2014Q1

REPORT INFORMATION
  Report Type: Report from Study
  Country: US (occurrence: US)
  Receive Date: 20140114
  Receipt Date: 20140114
  Transmission Date: 20141002
  Serious: Yes (Other)
  Sender: FDA-Public Use
  Company Number: US-BAYER-2014-004250

PATIENT
  Age: 29 Year
  Sex: Female

DRUGS (1)
  1. MIRENA [Suspect]
     Indication: CONTRACEPTION
     Dosage: 20 MCG/24HR, CONT
     Route: 015
     Dates: start: 20140106, end: 20140106

REACTIONS (4)
  - Device difficult to use [Recovered/Resolved]
  - Device difficult to use [Recovered/Resolved]
  - Uterine injury [Recovered/Resolved]
  - Complication of device insertion [Recovered/Resolved]
